FAERS Safety Report 5391051-1 (Version None)
Quarter: 2007Q3

REPORT INFORMATION
  Report Type: 
  Country: None (occurrence: None)
  Receive Date: 20070717
  Receipt Date: 20070710
  Transmission Date: 20080115
  Serious: Yes (Hospitalization)
  Sender: FDA-Public Use
  Company Number: 163-20785-07070504

PATIENT
  Age: 61 Year
  Sex: Male

DRUGS (2)
  1. THALOMID [Suspect]
     Indication: LEUKAEMIA PLASMACYTIC
     Dosage: SEE IMAGE
     Route: 048
     Dates: start: 20070126, end: 20070601
  2. THALOMID [Suspect]
     Indication: LEUKAEMIA PLASMACYTIC
     Dosage: SEE IMAGE
     Route: 048
     Dates: start: 20070612, end: 20070601

REACTIONS (2)
  - DRUG ADMINISTRATION ERROR [None]
  - RESPIRATORY FAILURE [None]
